FAERS Safety Report 11841591 (Version 1)
Quarter: 2015Q4

REPORT INFORMATION
  Report Type: Report from Study
  Country: CA (occurrence: CA)
  Receive Date: 20151216
  Receipt Date: 20151216
  Transmission Date: 20160305
  Serious: Yes (Hospitalization)
  Sender: FDA-Public Use
  Company Number: CA-KADMON PHARMACEUTICALS, LLC-KAD201510-003600

PATIENT
  Age: 57 Year
  Sex: Male
  Weight: 113.39 kg

DRUGS (17)
  1. MYLAN-BUPROPION [Concomitant]
  2. TEVA-SPIRONOLACTONE [Concomitant]
  3. HYDROMORPH CONTIN (HYDROMORPHONE) 4.5 MG [Concomitant]
  4. RIBAVIRIN 600 MG TABLETS [Suspect]
     Active Substance: RIBAVIRIN
     Indication: HEPATITIS C
     Route: 048
     Dates: start: 20150917
  5. HOLKIRA PAK [Suspect]
     Active Substance: DASABUVIR\OMBITASVIR\PARITAPREVIR\RITONAVIR
     Indication: HEPATITIS C
     Dosage: TABLET
     Route: 048
     Dates: start: 20150917
  6. NADOLOL. [Concomitant]
     Active Substance: NADOLOL
     Dates: start: 20151003
  7. HYDROMORPHONE [Concomitant]
     Active Substance: HYDROMORPHONE
  8. NADOLOL. [Concomitant]
     Active Substance: NADOLOL
     Route: 048
  9. LANTUS [Concomitant]
     Active Substance: INSULIN GLARGINE
  10. RABEPRAZOLE [Concomitant]
     Active Substance: RABEPRAZOLE
     Dates: end: 20151003
  11. VIREAD (TENOFOVIR) [Concomitant]
  12. LYRICA [Concomitant]
     Active Substance: PREGABALIN
     Indication: NEUROPATHY PERIPHERAL
     Route: 048
  13. TENOFOVIR [Concomitant]
     Active Substance: TENOFOVIR
     Indication: HEPATITIS B
     Route: 048
     Dates: start: 20131101
  14. MEDICAL MARIJUANA [Concomitant]
     Active Substance: CANNABIS SATIVA SUBSP. INDICA TOP
  15. FUROSEMIDE. [Concomitant]
     Active Substance: FUROSEMIDE
     Indication: OEDEMA
     Route: 048
  16. NADOLOL. [Concomitant]
     Active Substance: NADOLOL
     Indication: VARICES OESOPHAGEAL
     Dates: end: 2015
  17. NOVO-INSULIN [Concomitant]
     Dosage: 10 UNITS AM, 16 UNITS LUNCH, 16 UNITS SUPPER

REACTIONS (12)
  - Weight decreased [Unknown]
  - Haematemesis [Unknown]
  - Dehydration [Recovered/Resolved]
  - Dizziness [Unknown]
  - Bronchitis [Unknown]
  - Diarrhoea [Recovered/Resolved]
  - Fatigue [Not Recovered/Not Resolved]
  - Influenza [Recovered/Resolved]
  - Nausea [Recovered/Resolved]
  - Drug intolerance [Unknown]
  - Vomiting [Recovered/Resolved]
  - Vomiting [Unknown]

NARRATIVE: CASE EVENT DATE: 2015
